FAERS Safety Report 17293767 (Version 1)
Quarter: 2020Q1

REPORT INFORMATION
  Report Type: Spontaneous
  Country: US (occurrence: US)
  Receive Date: 20200121
  Receipt Date: 20200121
  Transmission Date: 20200409
  Serious: No
  Sender: FDA-Public Use
  Company Number: US-SA-2020SA014687

PATIENT
  Sex: Male

DRUGS (1)
  1. DUPIXENT [Suspect]
     Active Substance: DUPILUMAB
     Indication: DERMATITIS ATOPIC
     Dosage: 1 DF(300MG/2ML), QOW
     Route: 058
     Dates: start: 201911, end: 202001

REACTIONS (2)
  - Respiratory disorder [Unknown]
  - Allergy to animal [Unknown]

NARRATIVE: CASE EVENT DATE: 2019
